FAERS Safety Report 23142650 (Version 1)
Quarter: 2023Q4

REPORT INFORMATION
  Report Type: Spontaneous
  Country: US (occurrence: US)
  Receive Date: 20231103
  Receipt Date: 20231103
  Transmission Date: 20240110
  Serious: Yes (Other)
  Sender: FDA-Public Use
  Company Number: US-ROCHE-3443937

PATIENT
  Sex: Female

DRUGS (15)
  1. CAPECITABINE [Suspect]
     Active Substance: CAPECITABINE
     Indication: Product used for unknown indication
     Route: 048
  2. CAPECITABINE [Suspect]
     Active Substance: CAPECITABINE
     Indication: Product used for unknown indication
  3. PERJETA [Suspect]
     Active Substance: PERTUZUMAB
     Indication: Skin cancer
  4. HERCEPTIN [Suspect]
     Active Substance: TRASTUZUMAB
     Indication: Skin cancer
  5. ACETAMINOPHEN [Concomitant]
     Active Substance: ACETAMINOPHEN
  6. GABAPENTIN [Concomitant]
     Active Substance: GABAPENTIN
  7. HYDROCHLOROTHIAZIDE [Concomitant]
     Active Substance: HYDROCHLOROTHIAZIDE
  8. LEVOTHYROXINE [Concomitant]
     Active Substance: LEVOTHYROXINE
  9. METOPROLOL [Concomitant]
     Active Substance: METOPROLOL
  10. METRONIDAZOLE [Concomitant]
     Active Substance: METRONIDAZOLE
  11. SIMVASTATIN [Concomitant]
     Active Substance: SIMVASTATIN
  12. PEPCID [Concomitant]
     Active Substance: FAMOTIDINE
  13. SODIUM CHLORIDE [Concomitant]
     Active Substance: SODIUM CHLORIDE
  14. TAXOL [Concomitant]
     Active Substance: PACLITAXEL
  15. TAXOL [Concomitant]
     Active Substance: PACLITAXEL
     Dosage: PAST HISTORY

REACTIONS (3)
  - Extramammary Paget^s disease [Unknown]
  - Atrial fibrillation [Unknown]
  - Hypertension [Unknown]
